FAERS Safety Report 9855977 (Version 1)
Quarter: 2014Q1

REPORT INFORMATION
  Report Type: Spontaneous
  Country: US (occurrence: US)
  Receive Date: 20140130
  Receipt Date: 20140130
  Transmission Date: 20141002
  Serious: No
  Sender: FDA-Public Use
  Company Number: US-009507513-1401USA008427

PATIENT
  Age: 8 Month
  Sex: Female

DRUGS (1)
  1. A + D ORIGINAL OINTMENT [Suspect]
     Indication: PRODUCT USED FOR UNKNOWN INDICATION
     Dosage: UNK, UNKNOWN
     Route: 061
     Dates: start: 20131224

REACTIONS (2)
  - Application site erythema [Recovering/Resolving]
  - Accidental exposure to product [Unknown]
